FAERS Safety Report 9454626 (Version 2)
Quarter: 2013Q3

REPORT INFORMATION
  Report Type: Spontaneous
  Country: JP (occurrence: JP)
  Receive Date: 20130812
  Receipt Date: 20130906
  Transmission Date: 20140515
  Serious: Yes (Death)
  Sender: FDA-Public Use
  Company Number: JP-ASTRAZENECA-2013SE62331

PATIENT
  Age: 41 Year
  Sex: Male

DRUGS (6)
  1. PROPOFOL (NON AZ PRODUCT) [Suspect]
     Indication: INDUCTION OF ANAESTHESIA
     Route: 042
  2. FENTANYL [Concomitant]
     Indication: INDUCTION OF ANAESTHESIA
     Route: 042
  3. ROCURONIUM BROMIDE [Concomitant]
     Indication: INDUCTION OF ANAESTHESIA
     Route: 042
  4. SEVOFLURANE [Concomitant]
     Indication: MAINTENANCE OF ANAESTHESIA
     Route: 055
  5. REMIFENTANIL HYDROCHLORIDE [Concomitant]
     Indication: MAINTENANCE OF ANAESTHESIA
     Route: 042
  6. DEXMEDETOMIDINE HYDROCHLORIDE [Concomitant]
     Indication: SEDATION
     Route: 042

REACTIONS (7)
  - Propofol infusion syndrome [Fatal]
  - Neuroleptic malignant syndrome [Fatal]
  - Rhabdomyolysis [Fatal]
  - Renal failure [Fatal]
  - Acidosis [Fatal]
  - Blood pressure decreased [Unknown]
  - Liver disorder [Unknown]
